FAERS Safety Report 25475248 (Version 2)
Quarter: 2025Q3

REPORT INFORMATION
  Report Type: Spontaneous
  Country: AU (occurrence: AU)
  Receive Date: 20250624
  Receipt Date: 20250904
  Transmission Date: 20251021
  Serious: Yes (Death, Hospitalization, Other)
  Sender: GALPHARM INTERNATIONAL
  Company Number: None

PATIENT
  Age: 47 Year
  Sex: Female

DRUGS (41)
  1. ACETAMINOPHEN [Suspect]
     Active Substance: ACETAMINOPHEN
     Indication: Mental disorder
     Route: 065
     Dates: start: 202108
  2. ACETAMINOPHEN [Suspect]
     Active Substance: ACETAMINOPHEN
     Indication: Hypomania
     Route: 065
  3. ACETAMINOPHEN [Suspect]
     Active Substance: ACETAMINOPHEN
     Indication: Psychotic disorder
  4. ACETAMINOPHEN [Suspect]
     Active Substance: ACETAMINOPHEN
     Indication: Product used for unknown indication
  5. DIAZEPAM [Suspect]
     Active Substance: DIAZEPAM
     Indication: Mental disorder
     Route: 065
  6. DIAZEPAM [Suspect]
     Active Substance: DIAZEPAM
     Indication: Hypomania
  7. DIAZEPAM [Suspect]
     Active Substance: DIAZEPAM
     Indication: Psychotic disorder
  8. DIAZEPAM [Suspect]
     Active Substance: DIAZEPAM
     Indication: Product used for unknown indication
  9. OLANZAPINE [Suspect]
     Active Substance: OLANZAPINE
     Indication: Mental disorder
     Route: 065
  10. OLANZAPINE [Suspect]
     Active Substance: OLANZAPINE
     Indication: Hypomania
  11. OLANZAPINE [Suspect]
     Active Substance: OLANZAPINE
     Indication: Psychotic disorder
  12. OLANZAPINE [Suspect]
     Active Substance: OLANZAPINE
     Indication: Product used for unknown indication
  13. MIDAZOLAM [Suspect]
     Active Substance: MIDAZOLAM
     Indication: Mental disorder
     Route: 065
  14. MIDAZOLAM [Suspect]
     Active Substance: MIDAZOLAM
     Indication: Hypomania
  15. MIDAZOLAM [Suspect]
     Active Substance: MIDAZOLAM
     Indication: Psychotic disorder
  16. MIDAZOLAM [Suspect]
     Active Substance: MIDAZOLAM
     Indication: Product used for unknown indication
  17. HALOPERIDOL [Suspect]
     Active Substance: HALOPERIDOL
     Indication: Mental disorder
     Route: 042
  18. HALOPERIDOL [Suspect]
     Active Substance: HALOPERIDOL
     Indication: Hypomania
  19. HALOPERIDOL [Suspect]
     Active Substance: HALOPERIDOL
     Indication: Psychotic disorder
  20. HALOPERIDOL [Suspect]
     Active Substance: HALOPERIDOL
     Indication: Product used for unknown indication
  21. PROPOFOL [Suspect]
     Active Substance: PROPOFOL
     Indication: Mental disorder
     Route: 065
  22. PROPOFOL [Suspect]
     Active Substance: PROPOFOL
     Indication: Hypomania
  23. PROPOFOL [Suspect]
     Active Substance: PROPOFOL
     Indication: Psychotic disorder
  24. PROPOFOL [Suspect]
     Active Substance: PROPOFOL
     Indication: Product used for unknown indication
  25. KETAMINE [Suspect]
     Active Substance: KETAMINE
     Indication: Mental disorder
     Route: 065
  26. KETAMINE [Suspect]
     Active Substance: KETAMINE
     Indication: Hypomania
  27. KETAMINE [Suspect]
     Active Substance: KETAMINE
     Indication: Psychotic disorder
  28. KETAMINE [Suspect]
     Active Substance: KETAMINE
     Indication: Product used for unknown indication
  29. ARIPIPRAZOLE [Suspect]
     Active Substance: ARIPIPRAZOLE
     Indication: Mental disorder
     Route: 030
  30. ARIPIPRAZOLE [Suspect]
     Active Substance: ARIPIPRAZOLE
     Indication: Hypomania
     Route: 048
  31. ARIPIPRAZOLE [Suspect]
     Active Substance: ARIPIPRAZOLE
     Indication: Psychotic disorder
  32. ARIPIPRAZOLE [Suspect]
     Active Substance: ARIPIPRAZOLE
     Indication: Product used for unknown indication
  33. ZUCLOPENTHIXOL DECANOATE [Suspect]
     Active Substance: ZUCLOPENTHIXOL DECANOATE
     Indication: Product used for unknown indication
     Route: 065
  34. ZUCLOPENTHIXOL DECANOATE [Suspect]
     Active Substance: ZUCLOPENTHIXOL DECANOATE
  35. LORAZEPAM [Suspect]
     Active Substance: LORAZEPAM
     Indication: Product used for unknown indication
     Route: 065
  36. CANNABIS SATIVA SUBSP. INDICA TOP [Suspect]
     Active Substance: CANNABIS SATIVA SUBSP. INDICA TOP
     Indication: Product used for unknown indication
     Route: 065
  37. PANADOL [Concomitant]
     Active Substance: ACETAMINOPHEN
     Indication: Mental disorder
     Route: 065
  38. PANADOL [Concomitant]
     Active Substance: ACETAMINOPHEN
     Indication: Hypomania
  39. PANADOL [Concomitant]
     Active Substance: ACETAMINOPHEN
     Indication: Psychotic disorder
  40. PANADOL [Concomitant]
     Active Substance: ACETAMINOPHEN
     Indication: Product used for unknown indication
  41. ZUCLOPENTHIXOL [Concomitant]
     Active Substance: ZUCLOPENTHIXOL
     Indication: Antipsychotic therapy
     Route: 065

REACTIONS (13)
  - Acute respiratory failure [Fatal]
  - Toxicity to various agents [Fatal]
  - Agitation [Unknown]
  - Fall [Unknown]
  - Metabolic syndrome [Unknown]
  - Loss of personal independence in daily activities [Unknown]
  - Schizophrenia [Unknown]
  - Hyperkinesia [Unknown]
  - Mental impairment [Unknown]
  - Dyspnoea [Unknown]
  - Tardive dyskinesia [Unknown]
  - Refusal of treatment by patient [Unknown]
  - Drug monitoring procedure incorrectly performed [Unknown]

NARRATIVE: CASE EVENT DATE: 20200101
